FAERS Safety Report 23894391 (Version 1)
Quarter: 2024Q2

REPORT INFORMATION
  Report Type: Spontaneous
  Country: US (occurrence: US)
  Receive Date: 20240524
  Receipt Date: 20240524
  Transmission Date: 20240716
  Serious: No
  Sender: FDA-Public Use
  Company Number: US-GILEAD-2024-0674298

PATIENT
  Sex: Female

DRUGS (1)
  1. LENACAPAVIR [Suspect]
     Active Substance: LENACAPAVIR
     Indication: HIV infection
     Route: 065

REACTIONS (1)
  - Injection site nodule [Not Recovered/Not Resolved]
